FAERS Safety Report 6315534-2 (Version None)
Quarter: 2009Q3

REPORT INFORMATION
  Report Type: 
  Country: None (occurrence: None)
  Receive Date: 20090819
  Receipt Date: 20090812
  Transmission Date: 20100115
  Serious: Yes (Other)
  Sender: FDA-Public Use
  Company Number: BR-PFIZER INC-2009239511

PATIENT

DRUGS (1)
  1. DOSTINEX [Suspect]

REACTIONS (2)
  - MUSCULOSKELETAL STIFFNESS [None]
  - URINARY TRACT INFECTION [None]
